FAERS Safety Report 4606837-8 (Version None)
Quarter: 2005Q1

REPORT INFORMATION
  Report Type: 
  Country: None (occurrence: None)
  Receive Date: 20050310
  Receipt Date: 20050225
  Transmission Date: 20050727
  Serious: Yes (Other)
  Sender: FDA-Public Use
  Company Number: 2005011103

PATIENT
  Age: 67 Year
  Sex: Female
  Weight: 83.9154 kg

DRUGS (10)
  1. CELEBREX [Suspect]
     Indication: BACK PAIN
     Dosage: 200 MG (200 MG, 1 IN 1 D), ORAL
     Route: 048
     Dates: start: 19990101
  2. CELEBREX [Suspect]
     Indication: PERIARTHRITIS
     Dosage: 200 MG (200 MG, 1 IN 1 D), ORAL
     Route: 048
     Dates: start: 19990101
  3. CELEBREX [Suspect]
     Indication: RHEUMATOID ARTHRITIS
     Dosage: 200 MG (200 MG, 1 IN 1 D), ORAL
     Route: 048
     Dates: start: 19990101
  4. ASPIRIN [Concomitant]
  5. HYZAAR (HYDROCHLLOROTHIAZIDE, LOSARTAN POTASSIUM) [Concomitant]
  6. AMLODIPINE BESYLATE [Concomitant]
  7. FLUTICASONE PROPIONATE [Concomitant]
  8. MONTELUKAST (MONTELUKAST) [Concomitant]
  9. CALCIUM CARBONATE (CALCIUM CARBONATE) [Concomitant]
  10. GLUCOSAMINE (GLUCOSAMINE) [Concomitant]

REACTIONS (1)
  - KNEE ARTHROPLASTY [None]
